FAERS Safety Report 6269002-7 (Version None)
Quarter: 2009Q3

REPORT INFORMATION
  Report Type: 
  Country: None (occurrence: None)
  Receive Date: 20090715
  Receipt Date: 20090710
  Transmission Date: 20100115
  Serious: Yes (Hospitalization)
  Sender: FDA-Public Use
  Company Number: A0796694A

PATIENT
  Age: 81 Year
  Sex: Male
  Weight: 87.7 kg

DRUGS (14)
  1. MELPHALAN [Suspect]
     Indication: MULTIPLE MYELOMA
     Dosage: 9MGM2 PER DAY
     Route: 048
     Dates: start: 20090601, end: 20090604
  2. BORTEZOMIB [Suspect]
     Indication: MULTIPLE MYELOMA
     Dosage: 2.7MGM2 PER DAY
     Route: 042
     Dates: start: 20090601, end: 20090625
  3. PREDNISONE TAB [Suspect]
     Indication: MULTIPLE MYELOMA
     Dosage: 60MGM2 PER DAY
     Route: 048
     Dates: start: 20090601, end: 20090604
  4. FUROSEMIDE [Concomitant]
     Dates: start: 20090622
  5. K-DUR [Concomitant]
     Dates: start: 20090622
  6. ADVAIR DISKUS 100/50 [Concomitant]
     Route: 055
     Dates: start: 20090620
  7. FENTANYL-100 [Concomitant]
     Dates: start: 20090620
  8. GABAPENTIN [Concomitant]
     Dates: start: 20090605
  9. PROCHLORPERAZINE [Concomitant]
     Dates: start: 20090604
  10. OXYCODONE [Concomitant]
     Dates: start: 20090504
  11. PRAVACHOL [Concomitant]
  12. MIRALAX [Concomitant]
     Dates: start: 20090531
  13. ASPIRIN [Concomitant]
  14. MULTI-VITAMIN [Concomitant]
     Dates: start: 20090505

REACTIONS (2)
  - HYPOXIA [None]
  - PYREXIA [None]
